FAERS Safety Report 9517828 (Version 1)
Quarter: 2013Q3

REPORT INFORMATION
  Report Type: Spontaneous
  Country: US (occurrence: None)
  Receive Date: 20130910
  Receipt Date: 20130910
  Transmission Date: 20140515
  Serious: Yes (Other)
  Sender: FDA-Public Use
  Company Number: None

PATIENT
  Sex: Male

DRUGS (4)
  1. ENOXAPARIN [Suspect]
     Indication: COAGULOPATHY
     Dosage: A.M. + P.M. 2X, INJECTION (PER RX) UNDER SKIN
     Route: 058
     Dates: start: 20130610, end: 20130816
  2. ENOXAPARIN [Suspect]
     Indication: ATRIAL FIBRILLATION
     Dosage: A.M. + P.M. 2X, INJECTION (PER RX) UNDER SKIN
     Route: 058
     Dates: start: 20130610, end: 20130816
  3. ENOXAPARIN [Suspect]
     Indication: DEEP VEIN THROMBOSIS
     Dosage: A.M. + P.M. 2X, INJECTION (PER RX) UNDER SKIN
     Route: 058
     Dates: start: 20130610, end: 20130816
  4. ENOXAPARIN [Suspect]
     Indication: PULMONARY EMBOLISM
     Dosage: A.M. + P.M. 2X, INJECTION (PER RX) UNDER SKIN
     Route: 058
     Dates: start: 20130610, end: 20130816

REACTIONS (1)
  - Wrong technique in drug usage process [None]
